FAERS Safety Report 4986386-8 (Version None)
Quarter: 2006Q2

REPORT INFORMATION
  Report Type: 
  Country: None (occurrence: None)
  Receive Date: 20060428
  Receipt Date: 20060424
  Transmission Date: 20061013
  Serious: Yes (Hospitalization)
  Sender: FDA-Public Use
  Company Number: 2006007232

PATIENT
  Age: 30 Year
  Sex: Female
  Weight: 65 kg

DRUGS (5)
  1. ZYBAN [Suspect]
     Route: 048
     Dates: start: 20060401, end: 20060401
  2. ALCOHOL [Suspect]
     Route: 065
  3. MIRTAZAPINE [Suspect]
     Dosage: 30MG SINGLE DOSE
     Route: 048
     Dates: start: 20060401, end: 20060401
  4. TAVOR [Suspect]
     Dosage: 1MG SINGLE DOSE
     Route: 048
     Dates: start: 20060401, end: 20060401
  5. TREVILOR [Suspect]
     Dosage: 75MG SINGLE DOSE
     Route: 048
     Dates: start: 20060401, end: 20060401

REACTIONS (2)
  - SUICIDE ATTEMPT [None]
  - VOMITING [None]
